FAERS Safety Report 22691353 (Version 2)
Quarter: 2024Q1

REPORT INFORMATION
  Report Type: Spontaneous
  Country: CA (occurrence: CA)
  Receive Date: 20230711
  Receipt Date: 20240124
  Transmission Date: 20240410
  Serious: Yes (Other)
  Sender: FDA-Public Use
  Company Number: CA-MLMSERVICE-20230629-4374778-1

PATIENT
  Age: 68 Year
  Sex: Male

DRUGS (15)
  1. OXALIPLATIN [Suspect]
     Active Substance: OXALIPLATIN
     Indication: Colorectal cancer stage IV
     Dosage: 6TH LIFETIME OXALI CYCLE, CYCLIC
  2. OXALIPLATIN [Suspect]
     Active Substance: OXALIPLATIN
     Dosage: 6TH LIFETIME OXALI CYCLE, CYCLIC (137MG/250ML)
  3. FLUOROURACIL [Concomitant]
     Active Substance: FLUOROURACIL
     Indication: Colorectal cancer stage IV
     Dosage: 6TH LIFETIME OXALI CYCLE, CYCLIC
  4. FLUOROURACIL [Concomitant]
     Active Substance: FLUOROURACIL
     Dosage: 7TH LIFETIME OXALI CYCLE, CYCLIC
  5. LEUCOVORIN [Concomitant]
     Active Substance: LEUCOVORIN\LEUCOVORIN CALCIUM
     Indication: Colorectal cancer stage IV
     Dosage: 6TH LIFETIME OXALI CYCLE, CYCLIC
  6. LEUCOVORIN [Concomitant]
     Active Substance: LEUCOVORIN\LEUCOVORIN CALCIUM
     Dosage: 7TH LIFETIME OXALI CYCLE, CYCLIC
  7. DEXAMETHASONE [Concomitant]
     Active Substance: DEXAMETHASONE
     Indication: Premedication
     Dosage: 6TH LIFETIME OXALI CYCLE, CYCLIC
  8. DEXAMETHASONE [Concomitant]
     Active Substance: DEXAMETHASONE
     Dosage: 7TH LIFETIME OXALI CYCLE, CYCLIC
  9. ONDANSETRON [Concomitant]
     Active Substance: ONDANSETRON
     Indication: Premedication
     Dosage: 6TH LIFETIME OXALI CYCLE, CYCLIC
  10. ONDANSETRON [Concomitant]
     Active Substance: ONDANSETRON
     Dosage: 7TH LIFETIME OXALI CYCLE, CYCLIC
  11. SODIUM CHLORIDE [Concomitant]
     Active Substance: SODIUM CHLORIDE
     Indication: Premedication
     Dosage: 100ML/H (7TH LIFETIME OXALI CYCLE)
  12. IBUPROFEN [Concomitant]
     Active Substance: IBUPROFEN
     Indication: Premedication
     Dosage: UNK, CYCLIC, 7TH LIFETIME OXALI CYCLE
  13. FAMOTIDINE [Concomitant]
     Active Substance: FAMOTIDINE
     Indication: Premedication
     Dosage: UNK, CYCLIC, 7TH LIFETIME OXALI CYCLE
  14. ACETAMINOPHEN [Concomitant]
     Active Substance: ACETAMINOPHEN
     Indication: Premedication
     Dosage: UNK, CYCLIC, 7TH LIFETIME OXALI CYCLE
  15. CETIRIZINE [Concomitant]
     Active Substance: CETIRIZINE HYDROCHLORIDE
     Indication: Premedication

REACTIONS (2)
  - Type I hypersensitivity [Recovered/Resolved]
  - Cytokine release syndrome [Recovered/Resolved]
